FAERS Safety Report 21869543 (Version 2)
Quarter: 2023Q1

REPORT INFORMATION
  Report Type: Spontaneous
  Country: US (occurrence: US)
  Receive Date: 20230117
  Receipt Date: 20230206
  Transmission Date: 20230417
  Serious: No
  Sender: FDA-Public Use
  Company Number: US-JNJFOC-20230127503

PATIENT
  Sex: Female

DRUGS (3)
  1. STELARA [Suspect]
     Active Substance: USTEKINUMAB
     Indication: Rheumatoid arthritis
     Dosage: OTHER
     Route: 058
     Dates: start: 20230111
  2. STELARA [Suspect]
     Active Substance: USTEKINUMAB
  3. METHOTREXATE [Concomitant]
     Active Substance: METHOTREXATE
     Dates: start: 20220201

REACTIONS (5)
  - Fatigue [Recovered/Resolved]
  - Lethargy [Recovered/Resolved]
  - Nausea [Recovered/Resolved]
  - Decreased appetite [Recovered/Resolved]
  - Off label use [Unknown]
